FAERS Safety Report 25467621 (Version 1)
Quarter: 2025Q2

REPORT INFORMATION
  Report Type: Spontaneous
  Country: CA (occurrence: CA)
  Receive Date: 20250623
  Receipt Date: 20250623
  Transmission Date: 20250716
  Serious: Yes (Other)
  Sender: BAUSCH AND LOMB
  Company Number: CA-BAUSCH-BL-2025-007619

PATIENT
  Age: 45 Year
  Sex: Female

DRUGS (1)
  1. ELIDEL [Suspect]
     Active Substance: PIMECROLIMUS
     Indication: Dermatitis atopic
     Route: 061

REACTIONS (4)
  - Condition aggravated [Recovering/Resolving]
  - Blepharitis [Recovering/Resolving]
  - Eye swelling [Recovering/Resolving]
  - Hypersensitivity [Recovering/Resolving]
